FAERS Safety Report 4404240-7 (Version None)
Quarter: 2004Q3

REPORT INFORMATION
  Report Type: 
  Country: None (occurrence: None)
  Receive Date: 20040719
  Receipt Date: 20040702
  Transmission Date: 20050211
  Serious: Yes (Hospitalization)
  Sender: FDA-Public Use
  Company Number: 040712-0000395

PATIENT
  Age: 14 Year
  Sex: Male

DRUGS (5)
  1. MENDON (CLORAZEPATE DIPOTASSIUM) (UNKNOWN) [Suspect]
     Indication: EPILEPSY
     Dosage: 30 MG; QD; PO
     Route: 048
  2. MYSTAN (CLOBAZAM) [Suspect]
     Indication: EPILEPSY
     Dosage: 12 MG; QD; PO
     Route: 048
  3. PHENYTOIN [Suspect]
     Indication: EPILEPSY
     Dosage: 231 MG; QD; PO
     Route: 048
  4. EXCEGRAN (ZONISAMIDE) [Suspect]
     Indication: EPILEPSY
     Dosage: 150 MG; QD; PO
     Route: 048
  5. ZYLORIC [Concomitant]

REACTIONS (3)
  - ACUTE PROMYELOCYTIC LEUKAEMIA [None]
  - PLATELET COUNT DECREASED [None]
  - WHITE BLOOD CELL COUNT DECREASED [None]
